FAERS Safety Report 7765248-7 (Version None)
Quarter: 2011Q3

REPORT INFORMATION
  Report Type: 
  Country: None (occurrence: None)
  Receive Date: 20110921
  Receipt Date: 20110906
  Transmission Date: 20111222
  Serious: Yes (Other)
  Sender: FDA-Public Use
  Company Number: ZA-VIIV HEALTHCARE LIMITED-B0737165A

PATIENT
  Sex: Female
  Weight: 69 kg

DRUGS (5)
  1. SUSTIVA [Suspect]
     Indication: HIV INFECTION
     Dosage: 600MG AT NIGHT
     Route: 048
     Dates: start: 20060420, end: 20070906
  2. JASMINE [Concomitant]
     Route: 048
     Dates: start: 20071001, end: 20110624
  3. TRUVADA [Concomitant]
     Route: 048
     Dates: start: 20090120, end: 20110624
  4. COMBIVIR [Suspect]
     Indication: HIV INFECTION
     Route: 048
     Dates: start: 20060420, end: 20070906
  5. EFAVIRENZ [Concomitant]
     Route: 048
     Dates: start: 20090120, end: 20110624

REACTIONS (2)
  - MATERNAL EXPOSURE BEFORE PREGNANCY [None]
  - ABORTION SPONTANEOUS [None]
